FAERS Safety Report 12789759 (Version 1)
Quarter: 2016Q3

REPORT INFORMATION
  Report Type: Spontaneous
  Country: IN (occurrence: IN)
  Receive Date: 20160928
  Receipt Date: 20160928
  Transmission Date: 20161109
  Serious: Yes (Other)
  Sender: FDA-Public Use
  Company Number: PHHY2016IN131631

PATIENT
  Age: 26 Year
  Sex: Male

DRUGS (2)
  1. CLOFAZIMINE [Suspect]
     Active Substance: CLOFAZIMINE
     Indication: VITILIGO
     Dosage: 100 MG, QW
     Route: 048
  2. METHOXSALEN. [Interacting]
     Active Substance: METHOXSALEN
     Indication: VITILIGO
     Dosage: 10 MG, QD
     Route: 048

REACTIONS (5)
  - Visual field defect [Recovering/Resolving]
  - Product use issue [Unknown]
  - Maculopathy [Recovering/Resolving]
  - Colour blindness [Recovering/Resolving]
  - Drug interaction [Unknown]
